FAERS Safety Report 7987210-1 (Version None)
Quarter: 2011Q4

REPORT INFORMATION
  Report Type: 
  Country: None (occurrence: None)
  Receive Date: 20111216
  Receipt Date: 20111205
  Transmission Date: 20120403
  Serious: Yes (Death)
  Sender: FDA-Public Use
  Company Number: PHHY2011US108070

PATIENT
  Age: 51 Year
  Sex: Female

DRUGS (9)
  1. DIAZEPAM [Suspect]
     Route: 048
  2. TRAZODONE HCL [Suspect]
     Route: 048
  3. GABAPENTIN [Suspect]
     Route: 048
  4. BACLOFEN [Suspect]
     Route: 048
  5. CARISOPRODOL [Suspect]
     Route: 048
  6. ACETAMINOPHEN AND HYDROCODONE BITARTRATE [Suspect]
  7. TRAMADOL HCL [Suspect]
     Route: 048
  8. LAMOTRIGINE [Suspect]
     Route: 048
  9. LORAZEPAM [Suspect]
     Route: 048

REACTIONS (2)
  - MULTIPLE DRUG OVERDOSE INTENTIONAL [None]
  - COMPLETED SUICIDE [None]
